FAERS Safety Report 12599670 (Version 2)
Quarter: 2016Q3

REPORT INFORMATION
  Report Type: Spontaneous
  Country: SE (occurrence: SE)
  Receive Date: 20160727
  Receipt Date: 20160801
  Transmission Date: 20161109
  Serious: Yes (Other)
  Sender: FDA-Public Use
  Company Number: SE-SHIRE-SE201608904

PATIENT
  Age: 25 Year
  Sex: Female

DRUGS (2)
  1. ELVANSE VUXEN [Suspect]
     Active Substance: LISDEXAMFETAMINE DIMESYLATE
     Indication: ATTENTION DEFICIT/HYPERACTIVITY DISORDER
     Dosage: UNK UNK, UNKNOWN
     Route: 048
     Dates: start: 201511
  2. LERGIGAN                           /00033002/ [Suspect]
     Active Substance: PROMETHAZINE\PROMETHAZINE HYDROCHLORIDE
     Indication: SLEEP DISORDER
     Dosage: 25-50 MG, UNKNOWN
     Route: 065
     Dates: start: 2012, end: 201607

REACTIONS (1)
  - Time perception altered [Recovered/Resolved]

NARRATIVE: CASE EVENT DATE: 201511
